FAERS Safety Report 25123562 (Version 1)
Quarter: 2025Q1

REPORT INFORMATION
  Report Type: Spontaneous
  Country: US (occurrence: US)
  Receive Date: 20250326
  Receipt Date: 20250326
  Transmission Date: 20250409
  Serious: No
  Sender: GRIFOLS
  Company Number: US-IGSA-BIG0028755

PATIENT
  Sex: Female
  Weight: 35 kg

DRUGS (37)
  1. PROLASTIN-C LIQUID [Suspect]
     Active Substance: .ALPHA.1-PROTEINASE INHIBITOR HUMAN
     Indication: Alpha-1 antitrypsin deficiency
     Dosage: 2100 MILLIGRAM, Q.WK.
     Route: 042
     Dates: start: 20181010
  2. ANORO ELLIPTA [Concomitant]
     Active Substance: UMECLIDINIUM BROMIDE\VILANTEROL TRIFENATATE
  3. DALIRESP [Concomitant]
     Active Substance: ROFLUMILAST
  4. DIPHENHYDRAMINE [Concomitant]
     Active Substance: DIPHENHYDRAMINE
  5. GABAPENTIN [Concomitant]
     Active Substance: GABAPENTIN
  6. LACTULOSE [Concomitant]
     Active Substance: LACTULOSE
  7. LANSOPRAZOLE [Concomitant]
     Active Substance: LANSOPRAZOLE
  8. LORATADINE [Concomitant]
     Active Substance: LORATADINE
  9. PREDNISOLONE ACETATE [Concomitant]
     Active Substance: PREDNISOLONE ACETATE
  10. PROTEIN [Concomitant]
     Active Substance: PROTEIN
  11. SUBOXONE [Concomitant]
     Active Substance: BUPRENORPHINE HYDROCHLORIDE\NALOXONE HYDROCHLORIDE
  12. VALIUM [Concomitant]
     Active Substance: DIAZEPAM
  13. XOPENEX HFA [Concomitant]
     Active Substance: LEVALBUTEROL TARTRATE
  14. EPINEPHRINE [Concomitant]
     Active Substance: EPINEPHRINE
  15. DEXTROSE\SODIUM CHLORIDE [Concomitant]
     Active Substance: DEXTROSE\SODIUM CHLORIDE
  16. LUMIGAN [Concomitant]
     Active Substance: BIMATOPROST
  17. MORPHINE SULFATE [Concomitant]
     Active Substance: MORPHINE SULFATE
  18. ALPRAZOLAM [Concomitant]
     Active Substance: ALPRAZOLAM
  19. POLYETHYLENE GLYCOLS [Concomitant]
     Active Substance: POLYETHYLENE GLYCOLS
  20. TIZANIDINE HYDROCHLORIDE [Concomitant]
     Active Substance: TIZANIDINE HYDROCHLORIDE
  21. OXYCONTIN [Concomitant]
     Active Substance: OXYCODONE HYDROCHLORIDE
  22. ROFLUMILAST [Concomitant]
     Active Substance: ROFLUMILAST
  23. DOXYCYCLINE [Concomitant]
     Active Substance: DOXYCYCLINE
  24. FLUCONAZOLE [Concomitant]
     Active Substance: FLUCONAZOLE
  25. LEVALBUTEROL TARTRATE [Concomitant]
     Active Substance: LEVALBUTEROL TARTRATE
  26. MONTELUKAST SODIUM [Concomitant]
     Active Substance: MONTELUKAST SODIUM
  27. ALBUTEROL SULFATE [Concomitant]
     Active Substance: ALBUTEROL SULFATE
  28. SULFAMETHOXAZOLE AND TRIMETHOPRIM [Concomitant]
     Active Substance: SULFAMETHOXAZOLE\TRIMETHOPRIM
  29. CLINDAMYCIN HYDROCHLORIDE [Concomitant]
     Active Substance: CLINDAMYCIN HYDROCHLORIDE
  30. LATANOPROST [Concomitant]
     Active Substance: LATANOPROST
  31. NYSTATIN [Concomitant]
     Active Substance: NYSTATIN
     Route: 048
  32. TRAZODONE HCL [Concomitant]
     Active Substance: TRAZODONE HYDROCHLORIDE
  33. DIAZEPAM [Concomitant]
     Active Substance: DIAZEPAM
  34. ZENPEP [Concomitant]
     Active Substance: PANCRELIPASE AMYLASE\PANCRELIPASE LIPASE\PANCRELIPASE PROTEASE
  35. DEXAMETHASONE\NEOMYCIN SULFATE\POLYMYXIN B SULFATE [Concomitant]
     Active Substance: DEXAMETHASONE\NEOMYCIN SULFATE\POLYMYXIN B SULFATE
  36. PROLIA [Concomitant]
     Active Substance: DENOSUMAB
  37. BUPRENORPHINE HYDROCHLORIDE\NALOXONE HYDROCHLORIDE [Concomitant]
     Active Substance: BUPRENORPHINE HYDROCHLORIDE\NALOXONE HYDROCHLORIDE

REACTIONS (3)
  - Fatigue [Unknown]
  - Therapy interrupted [Unknown]
  - Illness [Unknown]
